FAERS Safety Report 9783787 (Version 1)
Quarter: 2013Q4

REPORT INFORMATION
  Report Type: Spontaneous
  Country: US (occurrence: US)
  Receive Date: 20131226
  Receipt Date: 20131226
  Transmission Date: 20140711
  Serious: No
  Sender: FDA-Public Use
  Company Number: US-PFIZER INC-2013366444

PATIENT
  Age: 55 Year
  Sex: Male
  Weight: 83.9 kg

DRUGS (1)
  1. ADVIL [Suspect]
     Indication: BACK PAIN
     Dosage: 400 MG (2 TABLETS OF 200MG), 1X/DAY
     Route: 048
     Dates: start: 201312

REACTIONS (1)
  - Constipation [Not Recovered/Not Resolved]
